FAERS Safety Report 6005515-0 (Version None)
Quarter: 2008Q4

REPORT INFORMATION
  Report Type: 
  Country: None (occurrence: None)
  Receive Date: 20081216
  Receipt Date: 20081216
  Transmission Date: 20090506
  Serious: Yes (Hospitalization)
  Sender: FDA-Public Use
  Company Number: None

PATIENT
  Age: 25 Year
  Sex: Female
  Weight: 44.9 kg

DRUGS (2)
  1. AMOXICILLIN [Suspect]
     Indication: BRONCHITIS
     Dosage: 500MG CAPSULE TWICE DAILY ORAL
     Route: 048
     Dates: start: 20081202, end: 20081206
  2. PREDNISONE [Concomitant]

REACTIONS (2)
  - ERYTHEMA MULTIFORME [None]
  - TACHYCARDIA [None]
